FAERS Safety Report 10246927 (Version 1)
Quarter: 2014Q2

REPORT INFORMATION
  Report Type: Spontaneous
  Country: US (occurrence: None)
  Receive Date: 20140617
  Receipt Date: 20140617
  Transmission Date: 20141212
  Serious: No
  Sender: FDA-Public Use
  Company Number: None

PATIENT
  Age: 61 Year
  Sex: Male

DRUGS (5)
  1. XTANDI [Suspect]
     Indication: PROSTATE CANCER
     Route: 048
  2. LUPRON DEPOT [Concomitant]
  3. TRAVATAN [Concomitant]
  4. AMLODIPINE [Concomitant]
  5. CRESTOR [Concomitant]

REACTIONS (3)
  - Fatigue [None]
  - Bone pain [None]
  - Arthralgia [None]
